FAERS Safety Report 8318157 (Version 3)
Quarter: 2013Q4

REPORT INFORMATION
  Report Type: Spontaneous
  Country: US (occurrence: US)
  Receive Date: 20120103
  Receipt Date: 20131220
  Transmission Date: 20140711
  Serious: No
  Sender: FDA-Public Use
  Company Number: US-PFIZER INC-2011314530

PATIENT
  Age: 69 Year
  Sex: Female
  Weight: 54.88 kg

DRUGS (1)
  1. ADVIL PM [Suspect]
     Indication: SLEEP DISORDER
     Dosage: UNK, DAILY
     Route: 048
     Dates: start: 201112, end: 20111226

REACTIONS (1)
  - Drug ineffective [Unknown]
